FAERS Safety Report 5761020-8 (Version None)
Quarter: 2008Q2

REPORT INFORMATION
  Report Type: 
  Country: None (occurrence: None)
  Receive Date: 20080606
  Receipt Date: 20070518
  Transmission Date: 20081010
  Serious: No
  Sender: FDA-Public Use
  Company Number: US-ASTRAZENECA-2007UW12466

PATIENT
  Age: 43 Year
  Sex: Female
  Weight: 49.9 kg

DRUGS (4)
  1. PRILOSEC [Suspect]
     Indication: GASTROOESOPHAGEAL REFLUX DISEASE
     Route: 048
     Dates: start: 19920101
  2. SYNTHROID [Concomitant]
  3. LISINOPRIL [Concomitant]
  4. PREMPRO [Concomitant]

REACTIONS (1)
  - SKIN BURNING SENSATION [None]
